FAERS Safety Report 5226764-5 (Version None)
Quarter: 2007Q1

REPORT INFORMATION
  Report Type: 
  Country: None (occurrence: None)
  Receive Date: 20070130
  Receipt Date: 20070117
  Transmission Date: 20070707
  Serious: Yes (Hospitalization, Disabling)
  Sender: FDA-Public Use
  Company Number: 152039ISR

PATIENT
  Age: 59 Year
  Sex: Female

DRUGS (2)
  1. PREDNISOLONE [Suspect]
     Indication: PSORIATIC ARTHROPATHY
     Route: 048
     Dates: start: 20000801
  2. ETANERCEPT [Suspect]
     Indication: PSORIATIC ARTHROPATHY
     Dosage: 25 MG (25 MG, 2 IN 1 WK)
     Route: 058
     Dates: start: 20031201, end: 20060201

REACTIONS (3)
  - HIP ARTHROPLASTY [None]
  - STAPHYLOCOCCAL INFECTION [None]
  - WOUND INFECTION [None]
